FAERS Safety Report 9613815 (Version 1)
Quarter: 2013Q4

REPORT INFORMATION
  Report Type: Spontaneous
  Country: US (occurrence: US)
  Receive Date: 20131010
  Receipt Date: 20131010
  Transmission Date: 20140711
  Serious: No
  Sender: FDA-Public Use
  Company Number: US-ALLERGAN-1218371US

PATIENT
  Age: 53 Year
  Sex: Female

DRUGS (2)
  1. VANIQA [Suspect]
     Indication: HAIR GROWTH ABNORMAL
     Dosage: APPLIED TO UPPER LIP
     Route: 061
     Dates: start: 201208, end: 201208
  2. VANIQA [Suspect]
     Dosage: APPLIED TO UPPER LIP
     Route: 061
     Dates: start: 201208, end: 201208

REACTIONS (1)
  - Rash [Recovered/Resolved]
